FAERS Safety Report 7818045-8 (Version None)
Quarter: 2011Q4

REPORT INFORMATION
  Report Type: 
  Country: None (occurrence: None)
  Receive Date: 20111017
  Receipt Date: 20110711
  Transmission Date: 20120403
  Serious: Yes (Life-Threatening, Hospitalization)
  Sender: FDA-Public Use
  Company Number: US-B.I. PHARMACEUTICALS,INC./RIDGEFIELD-2011-BP-12943BP

PATIENT
  Age: 67 Year
  Sex: Male
  Weight: 170.9 kg

DRUGS (1)
  1. PRADAXA [Suspect]
     Indication: ATRIAL FIBRILLATION
     Dosage: 300 MG
     Dates: start: 20110101, end: 20110512

REACTIONS (3)
  - TRANSIENT ISCHAEMIC ATTACK [None]
  - BLINDNESS [None]
  - CEREBROVASCULAR ACCIDENT [None]
